FAERS Safety Report 17386459 (Version 5)
Quarter: 2021Q2

REPORT INFORMATION
  Report Type: Report from Study
  Country: PA (occurrence: PA)
  Receive Date: 20200206
  Receipt Date: 20210627
  Transmission Date: 20210716
  Serious: Yes (Disabling, Other)
  Sender: FDA-Public Use
  Company Number: NVSC2020PA014774

PATIENT
  Age: 69 Year
  Sex: Female
  Weight: 53.97 kg

DRUGS (9)
  1. EXFORGE [Suspect]
     Active Substance: AMLODIPINE BESYLATE\VALSARTAN
     Dosage: 80/5 MG, MORE THAN A YEAR AGO
     Route: 065
  2. EXFORGE [Suspect]
     Active Substance: AMLODIPINE BESYLATE\VALSARTAN
     Dosage: 80/5 MG (STOP 2 YEARS APPROXIMATELY)
     Route: 065
     Dates: start: 2007
  3. EXFORGE [Suspect]
     Active Substance: AMLODIPINE BESYLATE\VALSARTAN
     Dosage: UNK (5/160 MG)
     Route: 065
  4. EXFORGE [Suspect]
     Active Substance: AMLODIPINE BESYLATE\VALSARTAN
     Dosage: UNK (5/80 MG)
     Route: 065
     Dates: start: 2007, end: 2020
  5. EXFORGE [Suspect]
     Active Substance: AMLODIPINE BESYLATE\VALSARTAN
     Indication: PRODUCT USED FOR UNKNOWN INDICATION
     Dosage: 320/5 MG
     Route: 065
  6. DIOVAN [Suspect]
     Active Substance: VALSARTAN
     Dosage: 1 DF, QD (IN MORNING)
     Route: 065
     Dates: start: 2020
  7. EXFORGE [Suspect]
     Active Substance: AMLODIPINE BESYLATE\VALSARTAN
     Dosage: 160/5 MG (STOP 2 YEARS APPROXIMATELY)
     Route: 065
     Dates: start: 2007
  8. DIOVAN [Suspect]
     Active Substance: VALSARTAN
     Indication: HYPERTENSION
     Dosage: 80 MG (STARTED 2 YEARS APPROX)
     Route: 065
  9. CRESTOR [Concomitant]
     Active Substance: ROSUVASTATIN CALCIUM
     Indication: PRODUCT USED FOR UNKNOWN INDICATION
     Dosage: UNK
     Route: 065

REACTIONS (17)
  - Tongue disorder [Unknown]
  - Gait inability [Unknown]
  - Hypertension [Unknown]
  - Weight decreased [Unknown]
  - Hypotension [Unknown]
  - Cerebrovascular accident [Unknown]
  - Deafness [Unknown]
  - Mobility decreased [Unknown]
  - Ischaemia [Unknown]
  - Drug ineffective [Unknown]
  - Ill-defined disorder [Unknown]
  - Hypoacusis [Unknown]
  - Irritability [Unknown]
  - Vocal cord atrophy [Unknown]
  - Aphasia [Unknown]
  - Dyspnoea [Unknown]
  - Fatigue [Unknown]

NARRATIVE: CASE EVENT DATE: 201911
